FAERS Safety Report 9250613 (Version 1)
Quarter: 2013Q1

REPORT INFORMATION
  Report Type: Spontaneous
  Country: US (occurrence: None)
  Receive Date: 20130305
  Receipt Date: 20130305
  Transmission Date: 20140127
  Serious: Yes (Hospitalization)
  Sender: FDA-Public Use
  Company Number: 163-21880-12062470

PATIENT
  Age: 61 Year
  Sex: Female
  Weight: 67.2 kg

DRUGS (13)
  1. REVLIMID [Suspect]
     Indication: PLASMA CELL MYELOMA
     Dosage: 1 IN 1 D
     Route: 048
     Dates: start: 201011
  2. ADRENAL [Concomitant]
  3. ASPIRIN (ACETYLSALICYLIC ACID) [Concomitant]
  4. COQ10 (UBIDECARENONE) [Concomitant]
  5. DHEA (PRASTERONE) [Concomitant]
  6. FOLIC ACID (FOLIC ACID) [Concomitant]
  7. LORAZEPAM (LORAZEPAM) [Concomitant]
  8. MAGNESIUM (MAGNESIUM) [Concomitant]
  9. PROGESTERONE (PROGESTERONE) [Concomitant]
  10. SIMILASE (UNKNOWN) [Concomitant]
  11. TESTOSTERONE (TESTOSTERONE) [Concomitant]
  12. VITAMIN B6 (PYRIDOXINE HYDROCHLORIDE) [Concomitant]
  13. VITAMIN D (ERGOCALCIFEROL) [Concomitant]

REACTIONS (2)
  - Pneumonia [None]
  - Pharyngitis streptococcal [None]
